FAERS Safety Report 9311737 (Version 1)
Quarter: 2013Q2

REPORT INFORMATION
  Report Type: Spontaneous
  Country: NL (occurrence: NL)
  Receive Date: 20130528
  Receipt Date: 20130528
  Transmission Date: 20140414
  Serious: Yes (Other)
  Sender: FDA-Public Use
  Company Number: NL-PFIZER INC-2013160187

PATIENT
  Age: 60 Year
  Sex: Female
  Weight: 70 kg

DRUGS (1)
  1. VENLAFAXINE HCL [Suspect]
     Dosage: 75 MG, 2X/DAY
     Dates: start: 20110101

REACTIONS (3)
  - Sensation of heaviness [Recovered/Resolved with Sequelae]
  - Depression [Recovered/Resolved with Sequelae]
  - Therapeutic response unexpected with drug substitution [Recovered/Resolved with Sequelae]
